FAERS Safety Report 8023460-6 (Version None)
Quarter: 2012Q1

REPORT INFORMATION
  Report Type: 
  Country: None (occurrence: None)
  Receive Date: 20120105
  Receipt Date: 20111227
  Transmission Date: 20120608
  Serious: Yes (Hospitalization)
  Sender: FDA-Public Use
  Company Number: US-BIOGENIDEC-2011BI026268

PATIENT
  Age: 59 Year
  Sex: Female

DRUGS (2)
  1. AVONEX [Suspect]
     Indication: MULTIPLE SCLEROSIS
     Route: 030
     Dates: start: 19961101, end: 20030101
  2. AVONEX [Suspect]
     Route: 030
     Dates: start: 20030101

REACTIONS (13)
  - PNEUMOTHORAX [None]
  - CARDIAC PACEMAKER INSERTION [None]
  - ANAESTHETIC COMPLICATION [None]
  - PROCEDURAL PAIN [None]
  - PERONEAL NERVE PALSY [None]
  - INTERVERTEBRAL DISC PROTRUSION [None]
  - LOSS OF CONSCIOUSNESS [None]
  - CARDIAC ARREST [None]
  - ABASIA [None]
  - AMNESIA [None]
  - PULSE ABSENT [None]
  - MIGRAINE [None]
  - HEMIPARESIS [None]
